FAERS Safety Report 12089927 (Version 1)
Quarter: 2016Q1

REPORT INFORMATION
  Report Type: Report from Study
  Country: US (occurrence: US)
  Receive Date: 20160218
  Receipt Date: 20160218
  Transmission Date: 20160526
  Serious: Yes (Other)
  Sender: FDA-Public Use
  Company Number: US-AMGEN-USASL2016019044

PATIENT
  Age: 60 Year
  Sex: Female

DRUGS (1)
  1. ENBREL [Suspect]
     Active Substance: ETANERCEPT
     Indication: RHEUMATOID ARTHRITIS
     Dosage: UNK
     Route: 065
     Dates: start: 20160201

REACTIONS (4)
  - Arthropathy [Not Recovered/Not Resolved]
  - Fall [Unknown]
  - Rheumatoid arthritis [Not Recovered/Not Resolved]
  - Impaired work ability [Not Recovered/Not Resolved]

NARRATIVE: CASE EVENT DATE: 201602
